FAERS Safety Report 20652714 (Version 1)
Quarter: 2022Q1

REPORT INFORMATION
  Report Type: Spontaneous
  Country: CZ (occurrence: CZ)
  Receive Date: 20220330
  Receipt Date: 20220330
  Transmission Date: 20220424
  Serious: Yes (Other)
  Sender: FDA-Public Use
  Company Number: CZ-NOVARTISPH-NVSC2022CZ059556

PATIENT
  Age: 67 Year
  Sex: Male

DRUGS (2)
  1. BEOVU [Suspect]
     Active Substance: BROLUCIZUMAB-DBLL
     Indication: Choroidal neovascularisation
     Dosage: UNK UNK, Q3MO
     Route: 065
     Dates: start: 202101
  2. BEOVU [Suspect]
     Active Substance: BROLUCIZUMAB-DBLL
     Dosage: UNK UNK, Q2MO
     Route: 065

REACTIONS (2)
  - Detachment of retinal pigment epithelium [Unknown]
  - Product use in unapproved indication [Unknown]
